FAERS Safety Report 4733462-0 (Version None)
Quarter: 2005Q3

REPORT INFORMATION
  Report Type: 
  Country: None (occurrence: None)
  Receive Date: 20050801
  Receipt Date: 20050726
  Transmission Date: 20060218
  Serious: Yes (Death)
  Sender: FDA-Public Use
  Company Number: HQWYE525017JUN05

PATIENT
  Age: 61 Year
  Sex: Male

DRUGS (4)
  1. ANCARON (AMIODARONE, TABLET) [Suspect]
     Indication: VENTRICULAR TACHYCARDIA
     Dosage: 100 MG 2X PER 1 DAY, ORAL
     Route: 048
     Dates: start: 20050215, end: 20050517
  2. DIGOXIN [Concomitant]
  3. VERAPAMIL HYDROCHLORIDE [Concomitant]
  4. MEXITIL [Concomitant]

REACTIONS (7)
  - BLOOD LACTATE DEHYDROGENASE [None]
  - BLOOD LACTATE DEHYDROGENASE INCREASED [None]
  - BLOOD UREA INCREASED [None]
  - HAEMATOCRIT DECREASED [None]
  - HAEMOGLOBIN DECREASED [None]
  - INTERSTITIAL LUNG DISEASE [None]
  - STAPHYLOCOCCAL SEPSIS [None]
